FAERS Safety Report 8814145 (Version 1)
Quarter: 2012Q4

REPORT INFORMATION
  Report Type: 
  Country: SE (occurrence: SE)
  Receive Date: 20120928
  Receipt Date: 20120928
  Transmission Date: 20130627
  Serious: Yes (Other)
  Sender: FDA-Public Use
  Company Number: SE-JNJFOC-20120905476

PATIENT
  Age: 39 Year
  Sex: Female

DRUGS (7)
  1. REMICADE [Suspect]
     Indication: SPONDYLITIS
     Route: 042
     Dates: start: 20110608
  2. REMICADE [Suspect]
     Indication: SPONDYLITIS
     Route: 042
     Dates: start: 201204
  3. REMICADE [Suspect]
     Indication: SPONDYLITIS
     Route: 042
     Dates: end: 20120626
  4. FENTANYL [Concomitant]
     Route: 062
  5. ARCOXIA [Concomitant]
     Route: 065
  6. MORPHINE [Concomitant]
     Route: 065
  7. CITODON [Concomitant]
     Route: 065

REACTIONS (3)
  - Immunodeficiency [Unknown]
  - Herpes zoster [Unknown]
  - Infection [Unknown]
